FAERS Safety Report 7501292-2 (Version None)
Quarter: 2011Q2

REPORT INFORMATION
  Report Type: 
  Country: None (occurrence: None)
  Receive Date: 20110524
  Receipt Date: 20110510
  Transmission Date: 20111010
  Serious: Yes (Other)
  Sender: FDA-Public Use
  Company Number: CA-JNJFOC-20110505449

PATIENT
  Sex: Female

DRUGS (1)
  1. REMICADE [Suspect]
     Indication: ANKYLOSING SPONDYLITIS
     Route: 042
     Dates: start: 20100501, end: 20101101

REACTIONS (4)
  - MENTAL IMPAIRMENT [None]
  - SLOW RESPONSE TO STIMULI [None]
  - THERAPEUTIC RESPONSE DECREASED [None]
  - AMNESIA [None]
